FAERS Safety Report 17960946 (Version 1)
Quarter: 2020Q2

REPORT INFORMATION
  Report Type: Report from Study
  Country: US (occurrence: US)
  Receive Date: 20200630
  Receipt Date: 20200630
  Transmission Date: 20200714
  Serious: Yes (Other)
  Sender: FDA-Public Use
  Company Number: US-BIOVITRUM-2019US3002

PATIENT
  Sex: Male

DRUGS (2)
  1. KINERET [Suspect]
     Active Substance: ANAKINRA
     Indication: LYMPHADENOPATHY
     Route: 058
     Dates: start: 20190830
  2. KINERET [Suspect]
     Active Substance: ANAKINRA
     Indication: IMMUNE SYSTEM DISORDER
     Route: 058
     Dates: start: 20190830

REACTIONS (11)
  - Neutropenia [Unknown]
  - Anaemia [Unknown]
  - Ear infection bacterial [Unknown]
  - Pyrexia [Unknown]
  - Weight increased [Unknown]
  - Off label use [Unknown]
  - Thrombocytopenia [Unknown]
  - Cough [Unknown]
  - Lymphadenopathy [Unknown]
  - Injection site oedema [Unknown]
  - Injection site erythema [Unknown]
